FAERS Safety Report 5420866-6 (Version None)
Quarter: 2007Q3

REPORT INFORMATION
  Report Type: 
  Country: None (occurrence: None)
  Receive Date: 20070817
  Receipt Date: 20070817
  Transmission Date: 20080115
  Serious: No
  Sender: FDA-Public Use
  Company Number: None

PATIENT
  Sex: Female
  Weight: 64.4108 kg

DRUGS (7)
  1. PRILOSEC OTC [Suspect]
     Indication: BARRETT'S OESOPHAGUS
     Dosage: 1 TABLET ONCE DAILY PO
     Route: 048
     Dates: start: 20070706, end: 20070809
  2. CLONAZEPAM [Concomitant]
  3. CONCERTA SR [Concomitant]
  4. EFFEXOR [Concomitant]
  5. ESTRING [Concomitant]
  6. PROVERA [Concomitant]
  7. FLONASE [Concomitant]

REACTIONS (6)
  - ABDOMINAL DISTENSION [None]
  - ARTHRALGIA [None]
  - CONSTIPATION [None]
  - FLATULENCE [None]
  - MUSCULAR WEAKNESS [None]
  - PAIN IN EXTREMITY [None]
